FAERS Safety Report 7289433-6 (Version None)
Quarter: 2011Q1

REPORT INFORMATION
  Report Type: 
  Country: None (occurrence: None)
  Receive Date: 20110211
  Receipt Date: 20110201
  Transmission Date: 20110831
  Serious: Yes (Hospitalization)
  Sender: FDA-Public Use
  Company Number: US-BAYER-2011-011058

PATIENT

DRUGS (1)
  1. AVELOX [Suspect]

REACTIONS (2)
  - LEUKOPENIA [None]
  - PANCYTOPENIA [None]
